FAERS Safety Report 7312471-1 (Version None)
Quarter: 2011Q1

REPORT INFORMATION
  Report Type: 
  Country: None (occurrence: None)
  Receive Date: 20110119
  Receipt Date: 20100722
  Transmission Date: 20110831
  Serious: Yes (Other)
  Sender: FDA-Public Use
  Company Number: A-US2010-38383

PATIENT
  Age: 49 Year
  Sex: Male

DRUGS (1)
  1. TRACLEER [Suspect]
     Indication: SCLERODERMA
     Dosage: ORAL
     Route: 048
     Dates: start: 20081120, end: 20100722

REACTIONS (1)
  - LIVER FUNCTION TEST ABNORMAL [None]
